FAERS Safety Report 4795520-4 (Version None)
Quarter: 2005Q4

REPORT INFORMATION
  Report Type: 
  Country: None (occurrence: None)
  Receive Date: 20051012
  Receipt Date: 20051005
  Transmission Date: 20060501
  Serious: Yes (Life-Threatening, Hospitalization, Disabling)
  Sender: FDA-Public Use
  Company Number: DK-MERCK-0510DNK00005

PATIENT
  Age: 71 Year
  Sex: Male

DRUGS (5)
  1. VIOXX [Suspect]
     Route: 048
     Dates: start: 20010515, end: 20010915
  2. CELECOXIB [Concomitant]
     Indication: ARTHRITIS
     Route: 048
     Dates: start: 20021128, end: 20040912
  3. CANDESARTAN CILEXETIL [Concomitant]
     Route: 048
     Dates: start: 19991229
  4. ALLOPURINOL [Concomitant]
     Route: 048
     Dates: start: 20010516
  5. DICLOFENAC SODIUM AND MISOPROSTOL [Concomitant]
     Route: 048
     Dates: start: 20000416

REACTIONS (1)
  - CEREBROVASCULAR ACCIDENT [None]
